FAERS Safety Report 8171525-0 (Version None)
Quarter: 2012Q1

REPORT INFORMATION
  Report Type: 
  Country: None (occurrence: None)
  Receive Date: 20120228
  Receipt Date: 20120222
  Transmission Date: 20120608
  Serious: Yes (Other)
  Sender: FDA-Public Use
  Company Number: BR-ABBOTT-11P-020-0732103-00

PATIENT
  Sex: Female
  Weight: 57 kg

DRUGS (2)
  1. METHOTREXATE [Concomitant]
     Indication: RHEUMATOID ARTHRITIS
     Dates: start: 20050101
  2. HUMIRA [Suspect]
     Indication: RHEUMATOID ARTHRITIS
     Route: 058
     Dates: start: 20090821, end: 20110501

REACTIONS (3)
  - PAIN IN EXTREMITY [None]
  - MUSCULOSKELETAL PAIN [None]
  - UTERINE INJURY [None]
